FAERS Safety Report 10777547 (Version 1)
Quarter: 2015Q1

REPORT INFORMATION
  Report Type: Spontaneous
  Country: US (occurrence: US)
  Receive Date: 20150209
  Receipt Date: 20150209
  Transmission Date: 20150721
  Serious: Yes (Other)
  Sender: FDA-Public Use
  Company Number: US-ELI_LILLY_AND_COMPANY-US201501010251

PATIENT
  Sex: Male

DRUGS (1)
  1. CYMBALTA [Suspect]
     Active Substance: DULOXETINE HYDROCHLORIDE
     Indication: MIGRAINE
     Dosage: UNK UNK, UNKNOWN
     Route: 065
     Dates: end: 201311

REACTIONS (16)
  - Nausea [Unknown]
  - Paraesthesia [Unknown]
  - Influenza like illness [Unknown]
  - Agitation [Unknown]
  - Vertigo [Unknown]
  - Irritability [Unknown]
  - Insomnia [Unknown]
  - Dizziness [Unknown]
  - Off label use [Unknown]
  - Aggression [Unknown]
  - Drug withdrawal syndrome [Unknown]
  - Pain [Unknown]
  - Mood swings [Unknown]
  - Crying [Unknown]
  - Sleep disorder [Unknown]
  - Vomiting [Unknown]
